FAERS Safety Report 19146120 (Version 4)
Quarter: 2021Q2

REPORT INFORMATION
  Report Type: Spontaneous
  Country: JP (occurrence: JP)
  Receive Date: 20210416
  Receipt Date: 20210604
  Transmission Date: 20210717
  Serious: Yes (Hospitalization, Other)
  Sender: FDA-Public Use
  Company Number: JP-TEVA-2021-JP-001406J

PATIENT
  Sex: Male

DRUGS (13)
  1. BROTIZOLAM OD TABLET 0.25MG ^TEVA^ [Suspect]
     Active Substance: BROTIZOLAM
     Dosage: .5 MILLIGRAM DAILY;
     Route: 048
     Dates: start: 20210506
  2. ARTANE [Concomitant]
     Active Substance: TRIHEXYPHENIDYL HYDROCHLORIDE
     Route: 065
  3. E KEPPRA [Concomitant]
     Active Substance: LEVETIRACETAM
     Indication: EPILEPSY
     Dosage: 3000 MILLIGRAM DAILY;
     Route: 048
  4. BELSOMRA [Concomitant]
     Active Substance: SUVOREXANT
     Route: 048
  5. VIMPAT [Concomitant]
     Active Substance: LACOSAMIDE
     Indication: EPILEPSY
     Dosage: 4 DOSAGE FORMS DAILY;
     Route: 048
  6. CERCINE [Suspect]
     Active Substance: DIAZEPAM
     Dosage: 5 MILLIGRAM DAILY;
     Route: 048
  7. MAGMITT [Concomitant]
     Active Substance: MAGNESIUM OXIDE
     Route: 048
  8. EURODIN 2MG. TABLETS [Suspect]
     Active Substance: ESTAZOLAM
     Indication: PRODUCT USED FOR UNKNOWN INDICATION
     Dosage: 1 DOSAGE FORMS DAILY;
     Route: 048
  9. BROTIZOLAM OD TABLET 0.25MG ^TEVA^ [Suspect]
     Active Substance: BROTIZOLAM
     Indication: INSOMNIA
     Route: 048
  10. CERCINE [Suspect]
     Active Substance: DIAZEPAM
     Indication: PRODUCT USED FOR UNKNOWN INDICATION
     Route: 048
  11. CERCINE [Suspect]
     Active Substance: DIAZEPAM
     Route: 048
  12. RIZE [Concomitant]
     Active Substance: CLOTIAZEPAM
     Route: 048
  13. SPIROPENT [Concomitant]
     Active Substance: CLENBUTEROL HYDROCHLORIDE
     Route: 048

REACTIONS (4)
  - Hospitalisation [Unknown]
  - Epilepsy [Unknown]
  - Insomnia [Unknown]
  - Malaise [Unknown]
